FAERS Safety Report 7329621-3 (Version None)
Quarter: 2011Q1

REPORT INFORMATION
  Report Type: 
  Country: None (occurrence: None)
  Receive Date: 20110303
  Receipt Date: 20110302
  Transmission Date: 20110831
  Serious: No
  Sender: FDA-Public Use
  Company Number: US-TEVA-268815USA

PATIENT
  Sex: Female
  Weight: 125.3 kg

DRUGS (5)
  1. HYDROXYZINE [Concomitant]
     Indication: PRODUCT USED FOR UNKNOWN INDICATION
  2. POTASSIUM [Concomitant]
     Indication: CARDIOMYOPATHY
  3. COUMADIN [Concomitant]
     Indication: CARDIOMYOPATHY
     Route: 048
  4. COZAAR [Concomitant]
     Indication: CARDIOMYOPATHY
  5. PLAN B ONE-STEP [Suspect]
     Indication: POST COITAL CONTRACEPTION
     Route: 048
     Dates: start: 20110223, end: 20110223

REACTIONS (3)
  - HEADACHE [None]
  - NAUSEA [None]
  - DIZZINESS [None]
